FAERS Safety Report 25025461 (Version 1)
Quarter: 2025Q1

REPORT INFORMATION
  Report Type: Spontaneous
  Country: JP (occurrence: JP)
  Receive Date: 20250228
  Receipt Date: 20250228
  Transmission Date: 20250409
  Serious: Yes (Death)
  Sender: MERCK SHARP & DOHME LLC
  Company Number: JP-BAYER-2024A170975

PATIENT
  Age: 89 Year
  Sex: Male

DRUGS (1)
  1. VERICIGUAT [Suspect]
     Active Substance: VERICIGUAT
     Indication: Cardiac failure chronic
     Dosage: DOSE DESCRIPTION : DAILY DOSE 5 MG?DAILY DOSE : 5 MILLIGRAM?CONCENTRATION: 5 MILLIGRAM?REGIMEN DO...
     Dates: start: 20241008, end: 20241119

REACTIONS (2)
  - Brain natriuretic peptide increased [Fatal]
  - Cardiac failure congestive [Fatal]

NARRATIVE: CASE EVENT DATE: 20241119
